FAERS Safety Report 19879820 (Version 1)
Quarter: 2021Q3

REPORT INFORMATION
  Report Type: Spontaneous
  Country: CN (occurrence: CN)
  Receive Date: 20210924
  Receipt Date: 20210924
  Transmission Date: 20211014
  Serious: Yes (Hospitalization)
  Sender: FDA-Public Use
  Company Number: CN-ASTRAZENECA-2021A733355

PATIENT
  Age: 49 Year
  Sex: Female
  Weight: 50 kg

DRUGS (4)
  1. FURAZOLIDONE [Suspect]
     Active Substance: FURAZOLIDONE
     Indication: HELICOBACTER INFECTION
     Route: 048
     Dates: start: 20210903, end: 20210903
  2. BISMUTH POTASSIUM CITRATE [Suspect]
     Active Substance: BISMUTH SUBCITRATE
     Indication: HELICOBACTER INFECTION
     Route: 048
     Dates: start: 20210903, end: 20210903
  3. ESOMEPRAZOLE MAGNESIUM. [Suspect]
     Active Substance: ESOMEPRAZOLE MAGNESIUM
     Indication: HELICOBACTER INFECTION
     Route: 048
     Dates: start: 20210903, end: 20210903
  4. AMOXICILLIN. [Suspect]
     Active Substance: AMOXICILLIN
     Indication: HELICOBACTER INFECTION
     Route: 048
     Dates: start: 20210903, end: 20210903

REACTIONS (4)
  - Abdominal pain [Recovering/Resolving]
  - Syncope [Recovering/Resolving]
  - Vomiting [Recovering/Resolving]
  - Diarrhoea [Recovering/Resolving]

NARRATIVE: CASE EVENT DATE: 20210903
